FAERS Safety Report 5089734-6 (Version None)
Quarter: 2006Q3

REPORT INFORMATION
  Report Type: 
  Country: None (occurrence: None)
  Receive Date: 20060823
  Receipt Date: 20060814
  Transmission Date: 20061208
  Serious: Yes (Death)
  Sender: FDA-Public Use
  Company Number: 163-21880-06060443

PATIENT
  Age: 70 Year
  Sex: Male

DRUGS (3)
  1. REVLIMID [Suspect]
     Indication: MYELODYSPLASTIC SYNDROME
     Dosage: 10 MG, OD X 21 DAYS Q 28 DAYS, ORAL
     Route: 048
     Dates: start: 20060419, end: 20060602
  2. EXJADE [Concomitant]
  3. PROCRIT [Concomitant]

REACTIONS (4)
  - DISEASE PROGRESSION [None]
  - FUNGAL INFECTION [None]
  - RENAL FAILURE [None]
  - RESPIRATORY FAILURE [None]
